FAERS Safety Report 9216549 (Version 1)
Quarter: 2013Q2

REPORT INFORMATION
  Report Type: Spontaneous
  Country: KR (occurrence: KR)
  Receive Date: 20130408
  Receipt Date: 20130408
  Transmission Date: 20140414
  Serious: Yes (Other)
  Sender: FDA-Public Use
  Company Number: KR-ROXANE LABORATORIES, INC.-2013-RO-00439RO

PATIENT
  Age: 52 Year
  Sex: Male

DRUGS (7)
  1. CLOPIDOGREL [Suspect]
     Indication: BRAIN STEM STROKE
  2. ASPIRIN [Suspect]
     Indication: BRAIN STEM STROKE
  3. MIDAZOLAM [Suspect]
     Indication: INDUCTION AND MAINTENANCE OF ANAESTHESIA
     Dosage: 2.5 MG
  4. MIDAZOLAM [Suspect]
  5. PROPOFOL [Suspect]
     Indication: INDUCTION OF ANAESTHESIA
  6. REMIFENTANIL [Suspect]
     Indication: INDUCTION OF ANAESTHESIA
  7. SEVOFLURANE [Suspect]
     Indication: ANAESTHESIA

REACTIONS (2)
  - Dyspnoea [Recovered/Resolved]
  - Fear of death [Unknown]
